FAERS Safety Report 6765435-0 (Version None)
Quarter: 2010Q2

REPORT INFORMATION
  Report Type: 
  Country: None (occurrence: None)
  Receive Date: 20100611
  Receipt Date: 20100531
  Transmission Date: 20101027
  Serious: Yes (Hospitalization)
  Sender: FDA-Public Use
  Company Number: FR-PURDUE-GBR-2010-0006628

PATIENT
  Sex: Female

DRUGS (9)
  1. OXYCONTIN [Suspect]
     Indication: PAIN
     Dosage: 20 MG, BID
     Route: 048
     Dates: start: 20100204, end: 20100207
  2. OXYNORM CAPSULES 5 MG [Suspect]
     Indication: PAIN
     Dosage: 4 CAPSL, PRN
     Route: 048
     Dates: start: 20100204, end: 20100207
  3. AMITRIPTYLINE HCL [Concomitant]
     Dosage: 25 MG X 3 TABS, NOCTE
     Route: 048
  4. LEXOMIL [Concomitant]
     Dosage: 6 MG, UNK
  5. SOTALOL [Concomitant]
     Dosage: 80 MG, UNK
  6. LYRICA [Concomitant]
     Dosage: 100 MG, BID
  7. CORTANCYL [Concomitant]
     Dosage: 10 MG, AM
  8. INEXIUM                            /01479302/ [Concomitant]
     Dosage: 1 DF, DAILY
  9. RISPERDAL [Concomitant]
     Dosage: 1 MG, NOCTE

REACTIONS (1)
  - DISTURBANCE IN ATTENTION [None]
